FAERS Safety Report 4483537-9 (Version None)
Quarter: 2004Q4

REPORT INFORMATION
  Report Type: 
  Country: None (occurrence: None)
  Receive Date: 20041019
  Receipt Date: 20041019
  Transmission Date: 20050328
  Serious: Yes (Hospitalization)
  Sender: FDA-Public Use
  Company Number: None

PATIENT
  Sex: Male

DRUGS (20)
  1. GLYBURIDE [Suspect]
     Indication: DIABETES MELLITUS
     Dosage: 10MG BID ORAL
     Route: 048
  2. APAP TAB [Concomitant]
  3. ASPIRIN [Concomitant]
  4. CARBIDOPA AND LEVODOPA [Concomitant]
  5. CLONIDINE HCL [Concomitant]
  6. DOCUSATE [Concomitant]
  7. FLURBIPROFEN OPHTHALMIC [Concomitant]
  8. FOLIC ACID [Concomitant]
  9. GALANTAMINE [Concomitant]
  10. HYDROCHLOROTHIAZIDE [Concomitant]
  11. LEVOTHYROXINE SODIUM [Concomitant]
  12. LISINOPRIL [Concomitant]
  13. METFORMIN HCL [Concomitant]
  14. METOPROLOL SUCCINATE [Concomitant]
  15. MULTI-VITAMIN [Concomitant]
  16. NIFEDIPINE [Concomitant]
  17. NTG SL [Concomitant]
  18. RANITIDINE [Concomitant]
  19. SIMVASTATIN [Concomitant]
  20. THIAMINE [Concomitant]

REACTIONS (2)
  - BLOOD GLUCOSE DECREASED [None]
  - COMA [None]
